FAERS Safety Report 6831385-4 (Version None)
Quarter: 2010Q3

REPORT INFORMATION
  Report Type: 
  Country: None (occurrence: None)
  Receive Date: 20100707
  Receipt Date: 20100625
  Transmission Date: 20110219
  Serious: Yes (Other)
  Sender: FDA-Public Use
  Company Number: 014613

PATIENT
  Sex: Male

DRUGS (6)
  1. LACOSAMIDE [Suspect]
     Dosage: (100 MG BID)
     Dates: start: 20091201
  2. DILANTIN [Concomitant]
  3. EFFEXOR [Concomitant]
  4. TOPAMAX [Concomitant]
  5. ATIVAN [Concomitant]
  6. NEXIUM [Concomitant]

REACTIONS (2)
  - BLINDNESS [None]
  - WEIGHT INCREASED [None]
